FAERS Safety Report 25189726 (Version 1)
Quarter: 2025Q2

REPORT INFORMATION
  Report Type: Spontaneous
  Country: JO (occurrence: JO)
  Receive Date: 20250411
  Receipt Date: 20250411
  Transmission Date: 20250716
  Serious: Yes (Death, Other)
  Sender: SANOFI AVENTIS
  Company Number: JO-DialogSolutions-SAAVPROD-PI754856-C4

PATIENT

DRUGS (1)
  1. ANTI-THYMOCYTE GLOBULIN (RABBIT) NOS [Suspect]
     Active Substance: LAPINE T-LYMPHOCYTE IMMUNE GLOBULIN
     Indication: Haematologic serotherapy

REACTIONS (2)
  - Multiple organ dysfunction syndrome [Fatal]
  - Bacterial sepsis [Fatal]
